FAERS Safety Report 17936611 (Version 1)
Quarter: 2020Q2

REPORT INFORMATION
  Report Type: Spontaneous
  Country: CA (occurrence: CA)
  Receive Date: 20200624
  Receipt Date: 20200624
  Transmission Date: 20200714
  Serious: Yes (Hospitalization)
  Sender: FDA-Public Use
  Company Number: CA-TEVA-2020-CA-1792445

PATIENT
  Age: 30 Year
  Sex: Male
  Weight: 100 kg

DRUGS (12)
  1. METHOTRIMEPRAZINE [Concomitant]
     Active Substance: LEVOMEPROMAZINE
  2. QUETIAPINE. [Concomitant]
     Active Substance: QUETIAPINE
  3. L-THYROXINE [Concomitant]
     Active Substance: LEVOTHYROXINE
  4. CLONIDINE. [Concomitant]
     Active Substance: CLONIDINE
  5. ESCITALOPRAM [Concomitant]
     Active Substance: ESCITALOPRAM OXALATE
  6. GABAPENTIN. [Concomitant]
     Active Substance: GABAPENTIN
  7. MELATONIN [Concomitant]
     Active Substance: MELATONIN
  8. BISOPROLOL [Concomitant]
     Active Substance: BISOPROLOL
  9. TOPIRAMATE. [Concomitant]
     Active Substance: TOPIRAMATE
  10. DIVALPROEX SODIUM. [Suspect]
     Active Substance: DIVALPROEX SODIUM
     Indication: EPILEPSY
     Dosage: 750 MILLIGRAM DAILY;
     Route: 048
  11. DIVALPROEX SODIUM. [Suspect]
     Active Substance: DIVALPROEX SODIUM
     Indication: AFFECTIVE DISORDER
     Dosage: 1000 MILLIGRAM DAILY;
     Route: 048
  12. CLONAZEPAM. [Concomitant]
     Active Substance: CLONAZEPAM

REACTIONS (6)
  - Liver function test abnormal [Unknown]
  - Memory impairment [Unknown]
  - Neutrophil count decreased [Unknown]
  - Disturbance in attention [Unknown]
  - Pyrexia [Unknown]
  - Somnolence [Unknown]
